FAERS Safety Report 16201235 (Version 2)
Quarter: 2020Q3

REPORT INFORMATION
  Report Type: Spontaneous
  Country: US (occurrence: US)
  Receive Date: 20190416
  Receipt Date: 20200724
  Transmission Date: 20201102
  Serious: Yes (Life-Threatening, Congenital Anomaly, Other)
  Sender: FDA-Public Use
  Company Number: US-ACCORD-121645

PATIENT
  Sex: Female

DRUGS (1)
  1. METHOTREXATE. [Suspect]
     Active Substance: METHOTREXATE
     Dosage: SINGLE DOSE
     Route: 064

REACTIONS (19)
  - Atrioventricular septal defect [Unknown]
  - Dysmorphism [Unknown]
  - Syndactyly [Unknown]
  - Congenital anomaly [Unknown]
  - Cleft palate [Unknown]
  - Off label use [Unknown]
  - Exophthalmos [Unknown]
  - Anogenital dysplasia [Unknown]
  - Micrognathia [Unknown]
  - Head deformity [Unknown]
  - Heart disease congenital [Unknown]
  - Foetal exposure during pregnancy [Unknown]
  - Adactyly [Unknown]
  - Limb reduction defect [Unknown]
  - Disorder of orbit [Unknown]
  - Foetal growth restriction [Unknown]
  - Fibula agenesis [Unknown]
  - Patent ductus arteriosus [Unknown]
  - Limb malformation [Unknown]
